FAERS Safety Report 24365171 (Version 1)
Quarter: 2024Q3

REPORT INFORMATION
  Report Type: Report from Study
  Country: MY (occurrence: MY)
  Receive Date: 20240926
  Receipt Date: 20240926
  Transmission Date: 20241017
  Serious: Yes (Death)
  Sender: SANDOZ
  Company Number: MY-BEIGENE-BGN-2023-013624

PATIENT
  Age: 59 Year
  Sex: Male
  Weight: 73.5 kg

DRUGS (9)
  1. CAPECITABINE [Suspect]
     Active Substance: CAPECITABINE
     Indication: Oesophageal adenocarcinoma
     Dosage: 1000 MG/M2 D1-D14
     Route: 048
     Dates: start: 20231004, end: 20231108
  2. OXALIPLATIN [Suspect]
     Active Substance: OXALIPLATIN
     Indication: Oesophageal adenocarcinoma
     Dosage: 130 MG/M2, Q3W
     Route: 042
     Dates: start: 20231004, end: 20231025
  3. OXALIPLATIN [Suspect]
     Active Substance: OXALIPLATIN
     Dosage: 130 MG/M2, Q3WK
     Route: 040
     Dates: start: 20231004, end: 20231025
  4. TISLELIZUMAB [Suspect]
     Active Substance: TISLELIZUMAB
     Indication: Oesophageal adenocarcinoma
     Dosage: 200 MG, Q3W
     Route: 042
     Dates: start: 20231004, end: 20231025
  5. ZANIDATAMAB [Suspect]
     Active Substance: ZANIDATAMAB
     Indication: Oesophageal adenocarcinoma
     Dosage: 2400 MG, Q3W FIRST CYCLE: 8 MG/KG, SUBSEQUENT CYCLES: 6 MG/KG
     Route: 042
     Dates: start: 20231004, end: 20231025
  6. CARBOXYMETHYLCELLULOSE SODIUM [Concomitant]
     Active Substance: CARBOXYMETHYLCELLULOSE SODIUM
     Indication: Dry eye
     Dosage: I/I, TID
     Route: 031
     Dates: start: 20231025
  7. LOMOTIL [Concomitant]
     Active Substance: ATROPINE SULFATE\DIPHENOXYLATE HYDROCHLORIDE
     Indication: Diarrhoea
     Dosage: I/I, PRN
     Route: 065
     Dates: start: 20231025
  8. LOPERAMIDE [Concomitant]
     Active Substance: LOPERAMIDE
     Indication: Diarrhoea
     Dosage: 04 MG, TID
     Route: 065
     Dates: start: 20231025
  9. ORAL REHYDRATION SALT [Concomitant]
     Indication: Diarrhoea
     Dosage: SACHET, PRN
     Route: 065
     Dates: start: 20231025

REACTIONS (2)
  - Hypokalaemia [Fatal]
  - Diarrhoea [Fatal]

NARRATIVE: CASE EVENT DATE: 20231113
